FAERS Safety Report 6745483-7 (Version None)
Quarter: 2010Q2

REPORT INFORMATION
  Report Type: 
  Country: None (occurrence: None)
  Receive Date: 20100528
  Receipt Date: 20100521
  Transmission Date: 20101027
  Serious: Yes (Other)
  Sender: FDA-Public Use
  Company Number: US-BAYER-201022055NA

PATIENT
  Age: 41 Year
  Sex: Female

DRUGS (4)
  1. BETASERON [Suspect]
     Indication: MULTIPLE SCLEROSIS
     Route: 058
     Dates: start: 20100410
  2. BETASERON [Suspect]
     Dosage: TOTAL DAILY DOSE: 4 MIU
     Route: 058
     Dates: start: 20100101
  3. BETASERON [Suspect]
     Dosage: TOTAL DAILY DOSE: 6 MIU
     Route: 058
     Dates: start: 20100508
  4. XANAX [Concomitant]

REACTIONS (19)
  - ABDOMINAL PAIN UPPER [None]
  - ANXIETY [None]
  - BACK PAIN [None]
  - CHEST DISCOMFORT [None]
  - CHEST PAIN [None]
  - CONTUSION [None]
  - CRYING [None]
  - DECREASED APPETITE [None]
  - DEPRESSION [None]
  - DIPLOPIA [None]
  - HAEMATEMESIS [None]
  - MOBILITY DECREASED [None]
  - MUSCLE SPASMS [None]
  - OCULAR HYPERAEMIA [None]
  - PAIN [None]
  - PARALYSIS [None]
  - PYREXIA [None]
  - TREMOR [None]
  - VAGINAL HAEMORRHAGE [None]
